FAERS Safety Report 7998737-0 (Version None)
Quarter: 2011Q4

REPORT INFORMATION
  Report Type: 
  Country: None (occurrence: None)
  Receive Date: 20111216
  Receipt Date: 20111205
  Transmission Date: 20120403
  Serious: Yes (Hospitalization, Other)
  Sender: FDA-Public Use
  Company Number: NSR_00325_2011

PATIENT
  Age: 58 Year
  Sex: Male
  Weight: 90 kg

DRUGS (8)
  1. METOCLOPRAMIDE [Suspect]
     Indication: IMPAIRED GASTRIC EMPTYING
     Dosage: (5 OR MORE TABLETS/DAY ORAL), (10 MG BID ORAL)
     Route: 048
  2. SERTRALINE HYDROCHLORIDE [Concomitant]
  3. NEBIVOLOL HCL [Concomitant]
  4. CLINDAMYCIN [Concomitant]
  5. MESALAMINE [Concomitant]
  6. VENLAFAXINE [Concomitant]
  7. VALSARTAN [Concomitant]
  8. RABEPRAZOLE SODIUM [Concomitant]

REACTIONS (30)
  - MENTAL STATUS CHANGES [None]
  - DYSARTHRIA [None]
  - TELANGIECTASIA [None]
  - QRS AXIS ABNORMAL [None]
  - DELIRIUM [None]
  - DELUSION [None]
  - LETHARGY [None]
  - HYPOTENSION [None]
  - HAEMOGLOBIN DECREASED [None]
  - BUNDLE BRANCH BLOCK LEFT [None]
  - OVERDOSE [None]
  - BLOOD ALCOHOL INCREASED [None]
  - HAEMODIALYSIS [None]
  - DEHYDRATION [None]
  - FEELING ABNORMAL [None]
  - FEELING JITTERY [None]
  - NUCHAL RIGIDITY [None]
  - SINUS TACHYCARDIA [None]
  - CONFUSIONAL STATE [None]
  - RESTLESSNESS [None]
  - CLOSTRIDIUM DIFFICILE COLITIS [None]
  - CONVULSION [None]
  - OXYGEN SATURATION DECREASED [None]
  - CEREBRAL SMALL VESSEL ISCHAEMIC DISEASE [None]
  - MUSCLE RIGIDITY [None]
  - ABDOMINAL TENDERNESS [None]
  - HAEMATOCRIT DECREASED [None]
  - METABOLIC ACIDOSIS [None]
  - RENAL FAILURE ACUTE [None]
  - RENAL IMPAIRMENT [None]
